FAERS Safety Report 5361766-X (Version None)
Quarter: 2007Q2

REPORT INFORMATION
  Report Type: 
  Country: None (occurrence: None)
  Receive Date: 20070619
  Receipt Date: 20070611
  Transmission Date: 20071010
  Serious: Yes (Other)
  Sender: FDA-Public Use
  Company Number: US-JNJFOC-20070602727

PATIENT
  Age: 34 Year
  Sex: Female

DRUGS (4)
  1. MONISTAT 1 COMBO PACK W/PREFAP, COOLWIPES [Suspect]
     Route: 067
  2. MONISTAT 1 COMBO PACK W/PREFAP, COOLWIPES [Suspect]
     Indication: FUNGAL INFECTION
     Route: 067
  3. MONISTAT 1 COMBO PACK W/PREFAP, COOLWIPES [Suspect]
     Route: 061
  4. MONISTAT 1 COMBO PACK W/PREFAP, COOLWIPES [Suspect]
     Dosage: 100MG TUBE (2% STRENGTH EXTERNAL CREAM)
     Route: 061

REACTIONS (3)
  - ABASIA [None]
  - BURNING SENSATION [None]
  - PAIN [None]
